FAERS Safety Report 4880690-X (Version None)
Quarter: 2006Q1

REPORT INFORMATION
  Report Type: 
  Country: None (occurrence: None)
  Receive Date: 20060113
  Receipt Date: 20060106
  Transmission Date: 20060701
  Serious: Yes (Hospitalization, Other)
  Sender: FDA-Public Use
  Company Number: US-MERCK-0601USA00995

PATIENT
  Age: 74 Year
  Sex: Male
  Weight: 124 kg

DRUGS (4)
  1. VIOXX [Suspect]
     Route: 065
  2. HYDROCHLOROTHIAZIDE [Concomitant]
     Route: 065
  3. CELEXA [Concomitant]
     Route: 065
  4. ALLOPRINOL [Concomitant]
     Indication: GOUT
     Route: 065

REACTIONS (2)
  - CEREBROVASCULAR ACCIDENT [None]
  - MYOCARDIAL INFARCTION [None]
